FAERS Safety Report 5412341-X (Version None)
Quarter: 2007Q3

REPORT INFORMATION
  Report Type: 
  Country: None (occurrence: None)
  Receive Date: 20070809
  Receipt Date: 20070730
  Transmission Date: 20080115
  Serious: Yes (Other)
  Sender: FDA-Public Use
  Company Number: 2007RL000218

PATIENT
  Age: 68 Year
  Sex: Male
  Weight: 108.8633 kg

DRUGS (2)
  1. OMACOR [Suspect]
     Indication: LIPIDS
     Dosage: 4 GM; QD; PO
     Route: 048
     Dates: start: 20070301, end: 20070401
  2. AMICAR [Suspect]
     Dosage: 1 GM; QD; PO
     Route: 048
     Dates: start: 20070118, end: 20070430

REACTIONS (2)
  - DRUG DISPENSING ERROR [None]
  - WRONG DRUG ADMINISTERED [None]
